FAERS Safety Report 22657361 (Version 1)
Quarter: 2023Q2

REPORT INFORMATION
  Report Type: Report from Study
  Country: CO (occurrence: CO)
  Receive Date: 20230630
  Receipt Date: 20230630
  Transmission Date: 20230722
  Serious: Yes (Other)
  Sender: FDA-Public Use
  Company Number: CO-EXELIXIS-CABO-23065351

PATIENT
  Age: 61 Year
  Sex: Male
  Weight: 53 kg

DRUGS (5)
  1. CABOMETYX [Suspect]
     Active Substance: CABOZANTINIB S-MALATE
     Indication: Renal cell carcinoma
     Dosage: 40 MG, QD (1 EVERY 24 HOURS)
     Route: 048
     Dates: start: 20230214, end: 20230615
  2. LEVETIRACETAM [Concomitant]
     Active Substance: LEVETIRACETAM
     Indication: Seizure
     Dosage: 1000 MG, Q8HR
     Route: 048
     Dates: start: 20220801
  3. LACOSAMIDE [Concomitant]
     Active Substance: LACOSAMIDE
     Indication: Seizure
     Dosage: 200 MG, Q8HR
     Route: 048
     Dates: start: 20220801
  4. PREDNISOLONE [Concomitant]
     Active Substance: PREDNISOLONE
     Indication: Headache
     Dosage: 5 MG, BID
     Route: 048
     Dates: start: 20221101
  5. TIZANIDINE HYDROCHLORIDE [Concomitant]
     Active Substance: TIZANIDINE HYDROCHLORIDE
     Dosage: 2 MG, QD
     Route: 048
     Dates: start: 20230619

REACTIONS (2)
  - Wound [Not Recovered/Not Resolved]
  - Asthenia [Not Recovered/Not Resolved]

NARRATIVE: CASE EVENT DATE: 20230615
